FAERS Safety Report 4662473-9 (Version None)
Quarter: 2005Q2

REPORT INFORMATION
  Report Type: 
  Country: None (occurrence: None)
  Receive Date: 20050512
  Receipt Date: 20050502
  Transmission Date: 20051028
  Serious: Yes (Hospitalization, Other)
  Sender: FDA-Public Use
  Company Number: HQWYE464002MAY05

PATIENT
  Age: 15 Year
  Sex: Male

DRUGS (1)
  1. ADVIL [Suspect]
     Indication: TONSILLITIS
     Dosage: 200 MG 5X PER 1 DAY
     Route: 048
     Dates: start: 20050210, end: 20050210

REACTIONS (3)
  - HAEMOPTYSIS [None]
  - INFECTION [None]
  - PROTHROMBIN LEVEL DECREASED [None]
